FAERS Safety Report 15011114 (Version 1)
Quarter: 2018Q2

REPORT INFORMATION
  Report Type: Spontaneous
  Country: NL (occurrence: NL)
  Receive Date: 20180614
  Receipt Date: 20180614
  Transmission Date: 20180711
  Serious: Yes (Other)
  Sender: FDA-Public Use
  Company Number: NL-PFIZER INC-2018234786

PATIENT
  Age: 75 Year
  Sex: Female
  Weight: 100 kg

DRUGS (7)
  1. AMLODIPINE BESILATE [Suspect]
     Active Substance: AMLODIPINE BESYLATE
     Indication: ARRHYTHMIA
  2. ACENOCOUMAROL [Concomitant]
     Active Substance: ACENOCOUMAROL
     Dosage: UNK
  3. PERINDOPRIL [Concomitant]
     Active Substance: PERINDOPRIL
     Dosage: 1 DF, 2X/DAY (2X PER DAY)
  4. AMIODARON [Concomitant]
     Active Substance: AMIODARONE
     Dosage: 100 MG, UNK (200 MG HALF TABLET)
  5. PANTOPRAZOL [Concomitant]
     Active Substance: PANTOPRAZOLE SODIUM
     Dosage: 40 MG, 1X/DAY
  6. AMLODIPINE BESILATE [Suspect]
     Active Substance: AMLODIPINE BESYLATE
     Indication: HYPERTENSION
     Dosage: 5 MG, 1X/DAY
     Route: 050
     Dates: start: 20180305, end: 20180423
  7. BISOPROLOL [Concomitant]
     Active Substance: BISOPROLOL
     Dosage: UNK ((NO MORE) SINCE 23 -3-2018 NO LONGER)
     Dates: end: 20180323

REACTIONS (8)
  - Nausea [Unknown]
  - Gingival swelling [Unknown]
  - Dizziness [Unknown]
  - Flushing [Unknown]
  - Glaucoma [Unknown]
  - Syncope [Unknown]
  - Chest pain [Unknown]
  - Pruritus [Unknown]

NARRATIVE: CASE EVENT DATE: 20180305
